FAERS Safety Report 6391252-X (Version None)
Quarter: 2009Q4

REPORT INFORMATION
  Report Type: 
  Country: None (occurrence: None)
  Receive Date: 20091006
  Receipt Date: 20091006
  Transmission Date: 20100525
  Serious: Yes (Other)
  Sender: FDA-Public Use
  Company Number: None

PATIENT
  Age: 41 Year
  Sex: Female
  Weight: 72.5755 kg

DRUGS (1)
  1. NASONEX [Suspect]

REACTIONS (4)
  - ARRHYTHMIA [None]
  - BLOOD CORTISOL DECREASED [None]
  - DEPRESSION [None]
  - FATIGUE [None]
